FAERS Safety Report 23996864 (Version 1)
Quarter: 2024Q2

REPORT INFORMATION
  Report Type: Report from Study
  Country: US (occurrence: US)
  Receive Date: 20240620
  Receipt Date: 20240620
  Transmission Date: 20240715
  Serious: Yes (Other)
  Sender: FDA-Public Use
  Company Number: US-ABBVIE-5806492

PATIENT
  Sex: Male

DRUGS (1)
  1. RINVOQ [Suspect]
     Active Substance: UPADACITINIB
     Indication: Crohn^s disease
     Route: 048
     Dates: start: 20240304

REACTIONS (9)
  - Heat stroke [Recovering/Resolving]
  - Seizure [Recovering/Resolving]
  - Fall [Recovering/Resolving]
  - Renal impairment [Recovering/Resolving]
  - Vomiting [Unknown]
  - Memory impairment [Unknown]
  - Speech disorder [Unknown]
  - Asthenia [Not Recovered/Not Resolved]
  - Malaise [Unknown]

NARRATIVE: CASE EVENT DATE: 20240101
